FAERS Safety Report 11776485 (Version 1)
Quarter: 2015Q4

REPORT INFORMATION
  Report Type: Spontaneous
  Country: US (occurrence: US)
  Receive Date: 20151125
  Receipt Date: 20151125
  Transmission Date: 20160304
  Serious: Yes (Hospitalization)
  Sender: FDA-Public Use
  Company Number: US-ACCORD-035558

PATIENT
  Age: 20 Year
  Sex: Female

DRUGS (7)
  1. SERTRALINE [Concomitant]
     Active Substance: SERTRALINE HYDROCHLORIDE
  2. DIPHENHYDRAMINE/PARACETAMOL [Suspect]
     Active Substance: ACETAMINOPHEN\DIPHENHYDRAMINE
     Dosage: 50 TABLETS
  3. CLONAZEPAM. [Suspect]
     Active Substance: CLONAZEPAM
     Dosage: 3 TABLETS, ALSO RECEIVED 0.5 MG/D
  4. ZOLPIDEM [Suspect]
     Active Substance: ZOLPIDEM\ZOLPIDEM TARTRATE
     Dosage: 20 TABLETS, ALSO RECEIVED 10 MG AT BEDTIME
  5. ESCITALOPRAM [Concomitant]
     Active Substance: ESCITALOPRAM OXALATE
  6. FLUOXETINE [Concomitant]
     Active Substance: FLUOXETINE HYDROCHLORIDE
  7. DEXAMFETAMINE/DEXAMFETAMINE PHOSPHATE/DEXAMFETAMINE RESINATE/DEXAMFETAMINE SACCHARATE/DEXAMFETAMINE [Concomitant]

REACTIONS (8)
  - Overdose [Unknown]
  - Alanine aminotransferase increased [None]
  - Aspartate aminotransferase increased [None]
  - Blood bilirubin increased [None]
  - Electrocardiogram QT prolonged [None]
  - Vomiting [Unknown]
  - Suicide attempt [Unknown]
  - Hypokalaemia [None]
